FAERS Safety Report 13881615 (Version 5)
Quarter: 2018Q2

REPORT INFORMATION
  Report Type: Spontaneous
  Country: DE (occurrence: DE)
  Receive Date: 20170818
  Receipt Date: 20180614
  Transmission Date: 20180711
  Serious: Yes (Life-Threatening, Hospitalization, Other)
  Sender: FDA-Public Use
  Company Number: DE-TORRENT-00006850

PATIENT
  Age: 25 Year
  Sex: Female
  Weight: 65 kg

DRUGS (2)
  1. QUETIAPINE. [Suspect]
     Active Substance: QUETIAPINE
     Indication: DEPRESSION
     Dosage: POTENTIALLY LETHAL DOSE, 150 MG/KG
     Route: 048
  2. AMITRIPTYLIN [Suspect]
     Active Substance: AMITRIPTYLINE
     Indication: BORDERLINE PERSONALITY DISORDER
     Dosage: POTENTIALLY LETHAL DOSE, 85 MG/KG BODYWEIGHT
     Route: 048

REACTIONS (14)
  - Electrocardiogram QT prolonged [Recovering/Resolving]
  - Toxicity to various agents [Recovering/Resolving]
  - Cardiotoxicity [Recovered/Resolved]
  - Arrhythmia [Recovered/Resolved]
  - Coma [Recovered/Resolved]
  - Ventricular tachycardia [Recovered/Resolved]
  - Overdose [Recovered/Resolved]
  - Shock [Recovered/Resolved]
  - Cardiogenic shock [Recovered/Resolved]
  - Hyperthermia [Recovered/Resolved]
  - Suicide attempt [Recovered/Resolved]
  - Alcohol poisoning [Recovering/Resolving]
  - Anticholinergic syndrome [Recovered/Resolved]
  - Myoclonus [Recovered/Resolved]
